FAERS Safety Report 20119647 (Version 1)
Quarter: 2021Q4

REPORT INFORMATION
  Report Type: Spontaneous
  Country: US (occurrence: None)
  Receive Date: 20211126
  Receipt Date: 20211126
  Transmission Date: 20220304
  Serious: Yes (Other)
  Sender: FDA-Public Use
  Company Number: 2021A830643

PATIENT
  Age: 68 Year
  Sex: Female

DRUGS (17)
  1. FARXIGA [Suspect]
     Active Substance: DAPAGLIFLOZIN PROPANEDIOL
     Indication: Diabetes mellitus
     Route: 048
     Dates: start: 2017
  2. METOPROLOL TARTRATE [Suspect]
     Active Substance: METOPROLOL TARTRATE
     Route: 065
  3. CRESTOR [Suspect]
     Active Substance: ROSUVASTATIN CALCIUM
  4. METFORMIN HYDROCHLORIDE [Suspect]
     Active Substance: METFORMIN HYDROCHLORIDE
     Indication: Diabetes mellitus
     Route: 065
  5. TERIFLUNOMIDE [Suspect]
     Active Substance: TERIFLUNOMIDE
     Indication: Multiple sclerosis
     Route: 048
     Dates: start: 201503, end: 2015
  6. TERIFLUNOMIDE [Suspect]
     Active Substance: TERIFLUNOMIDE
     Indication: Multiple sclerosis
     Route: 048
     Dates: start: 201502, end: 2015
  7. TERIFLUNOMIDE [Suspect]
     Active Substance: TERIFLUNOMIDE
     Indication: Multiple sclerosis
     Route: 048
     Dates: start: 201603, end: 2016
  8. OZEMPIC [Suspect]
     Active Substance: SEMAGLUTIDE
     Indication: Glycosylated haemoglobin
     Route: 065
     Dates: start: 202012
  9. ASPIRIN [Concomitant]
     Active Substance: ASPIRIN
  10. LISINOPRIL [Concomitant]
     Active Substance: LISINOPRIL
  11. COZAAR [Concomitant]
     Active Substance: LOSARTAN POTASSIUM
  12. DILTIAZEM [Concomitant]
     Active Substance: DILTIAZEM
  13. BONIVA [Concomitant]
     Active Substance: IBANDRONATE SODIUM
  14. FOSAMAX [Concomitant]
     Active Substance: ALENDRONATE SODIUM
  15. TERBINAFINE [Concomitant]
     Active Substance: TERBINAFINE
  16. WELCHOL [Concomitant]
     Active Substance: COLESEVELAM HYDROCHLORIDE
  17. PAMELOR [Concomitant]
     Active Substance: NORTRIPTYLINE HYDROCHLORIDE

REACTIONS (23)
  - Kidney infection [Unknown]
  - Abdominal distension [Unknown]
  - Allergy to vaccine [Recovered/Resolved]
  - Alanine aminotransferase increased [Recovered/Resolved]
  - Alopecia [Unknown]
  - Blood glucose increased [Not Recovered/Not Resolved]
  - Cough [Recovering/Resolving]
  - Diarrhoea [Recovering/Resolving]
  - Decreased appetite [Unknown]
  - Dyspnoea [Recovering/Resolving]
  - Fungal skin infection [Unknown]
  - Glycosylated haemoglobin increased [Unknown]
  - Hair growth abnormal [Unknown]
  - Limb discomfort [Unknown]
  - Memory impairment [Not Recovered/Not Resolved]
  - Nasopharyngitis [Recovering/Resolving]
  - Nausea [Not Recovered/Not Resolved]
  - Pyrexia [Unknown]
  - Raynaud^s phenomenon [Recovering/Resolving]
  - Skin discolouration [Unknown]
  - Vomiting [Recovered/Resolved]
  - Weight decreased [Unknown]
  - Product dose omission issue [Unknown]
